FAERS Safety Report 7778311-1 (Version None)
Quarter: 2011Q3

REPORT INFORMATION
  Report Type: 
  Country: None (occurrence: None)
  Receive Date: 20110926
  Receipt Date: 20110923
  Transmission Date: 20111222
  Serious: Yes (Other)
  Sender: FDA-Public Use
  Company Number: PL-BAYER-2011-089963

PATIENT
  Age: 60 Year
  Sex: Female
  Weight: 76 kg

DRUGS (1)
  1. GADAVIST [Suspect]
     Indication: PRODUCT USED FOR UNKNOWN INDICATION
     Dosage: 7.5 ML, ONCE
     Route: 040
     Dates: start: 20110908, end: 20110908

REACTIONS (6)
  - DYSPNOEA [None]
  - BLOOD PRESSURE INCREASED [None]
  - OROPHARYNGEAL DISCOMFORT [None]
  - HYPERSENSITIVITY [None]
  - APHONIA [None]
  - UNEVALUABLE EVENT [None]
